FAERS Safety Report 6660548-6 (Version None)
Quarter: 2010Q1

REPORT INFORMATION
  Report Type: 
  Country: None (occurrence: None)
  Receive Date: 20100331
  Receipt Date: 20100330
  Transmission Date: 20100710
  Serious: Yes (Death, Hospitalization)
  Sender: FDA-Public Use
  Company Number: PHHY2010VN18662

PATIENT
  Age: 68 Year
  Sex: Female

DRUGS (7)
  1. ACLASTA [Suspect]
     Indication: OSTEOPOROSIS
     Dosage: 5 MG
     Route: 042
     Dates: start: 20100316
  2. AMLOR [Concomitant]
  3. ENALAPRIL MALEATE [Concomitant]
  4. ROCALTROL [Concomitant]
  5. CALCIUM [Concomitant]
  6. CALCITONIN [Concomitant]
  7. CANXI [Concomitant]

REACTIONS (4)
  - BACK PAIN [None]
  - CARDIAC ARREST [None]
  - COMA [None]
  - VENTRICULAR ARRHYTHMIA [None]
